FAERS Safety Report 26197464 (Version 1)
Quarter: 2025Q4

REPORT INFORMATION
  Report Type: Spontaneous
  Country: US (occurrence: US)
  Receive Date: 20251224
  Receipt Date: 20251224
  Transmission Date: 20260118
  Serious: Yes (Hospitalization)
  Sender: BRISTOL-MYERS SQUIBB COMPANY
  Company Number: US-BRISTOL-MYERS SQUIBB COMPANY-2025-171217

PATIENT
  Age: 62 Year
  Sex: Female

DRUGS (3)
  1. POMALYST [Suspect]
     Active Substance: POMALIDOMIDE
     Indication: Plasma cell myeloma recurrent
     Dosage: 1 TIME A DAY
     Route: 048
     Dates: start: 202404
  2. POMALYST [Suspect]
     Active Substance: POMALIDOMIDE
     Route: 048
  3. NINLARO [Concomitant]
     Active Substance: IXAZOMIB CITRATE
     Indication: Chemotherapy

REACTIONS (1)
  - Appendix disorder [Unknown]

NARRATIVE: CASE EVENT DATE: 20251110
